FAERS Safety Report 5724819-X (Version None)
Quarter: 2008Q2

REPORT INFORMATION
  Report Type: 
  Country: None (occurrence: None)
  Receive Date: 20080501
  Receipt Date: 20080418
  Transmission Date: 20081010
  Serious: Yes (Hospitalization)
  Sender: FDA-Public Use
  Company Number: US-AMGEN-QUU271400

PATIENT
  Sex: Female
  Weight: 84.9 kg

DRUGS (5)
  1. ENBREL [Suspect]
     Indication: RHEUMATOID ARTHRITIS
     Route: 058
     Dates: start: 19981201
  2. NORVASC [Concomitant]
  3. ZANTAC [Concomitant]
  4. OS-CAL [Concomitant]
  5. TYLENOL W/ CODEINE NO. 3 [Concomitant]

REACTIONS (2)
  - INJECTION SITE IRRITATION [None]
  - JOINT ANKYLOSIS [None]
